FAERS Safety Report 15826921 (Version 2)
Quarter: 2019Q1

REPORT INFORMATION
  Report Type: Report from Study
  Country: None (occurrence: US)
  Receive Date: 20190115
  Receipt Date: 20190211
  Transmission Date: 20190417
  Serious: Yes (Death)
  Sender: FDA-Public Use
  Company Number: US-US WORLDMEDS, LLC-USW201901-000033

PATIENT
  Age: 61 Year
  Sex: Male
  Weight: 92.07 kg

DRUGS (20)
  1. NUPLAZID [Concomitant]
     Active Substance: PIMAVANSERIN TARTRATE
     Indication: HALLUCINATION
  2. SENNA [Concomitant]
     Active Substance: SENNA LEAF\SENNOSIDES\SENNOSIDES A AND B
  3. AMANTADINE. [Concomitant]
     Active Substance: AMANTADINE HYDROCHLORIDE
  4. QUETIAPINE. [Concomitant]
     Active Substance: QUETIAPINE
     Indication: HALLUCINATION
  5. LYRICA [Concomitant]
     Active Substance: PREGABALIN
  6. CARBIDOPA/LEVODOPA 50/200 [Concomitant]
  7. TRIMETHOBENZAMIDE [Concomitant]
     Active Substance: TRIMETHOBENZAMIDE
  8. AMANTADINE. [Concomitant]
     Active Substance: AMANTADINE HYDROCHLORIDE
     Dosage: TOOK TWICE A DAY FOR SEVERAL WEEKS, BUT RAN OUT EARLY.
  9. AZILECT [Concomitant]
     Active Substance: RASAGILINE MESYLATE
  10. COL-RITE [Concomitant]
     Active Substance: DOCUSATE SODIUM
  11. DEPO-TESTOSTERONE [Concomitant]
     Active Substance: TESTOSTERONE CYPIONATE
  12. APOKYN [Suspect]
     Active Substance: APOMORPHINE HYDROCHLORIDE
     Route: 058
     Dates: start: 201806
  13. CARBIDOPA/LEVODOPA 50/200 [Concomitant]
     Indication: PARKINSON^S DISEASE
     Dosage: 1600MG PER 24HRS; 2 TABLET EVERY 4 HOURS AND 3 AT BEDTIME (1600MG/24HRS)- INCREASED ON HIS OWN
  14. MEMANTADINE [Concomitant]
     Indication: COGNITIVE DISORDER
  15. OXYCODONE/APAP [Concomitant]
     Active Substance: ACETAMINOPHEN\OXYCODONE HYDROCHLORIDE
  16. APOKYN [Suspect]
     Active Substance: APOMORPHINE HYDROCHLORIDE
  17. CARBIDOPA/LEVODOPA 25/100 [Concomitant]
     Active Substance: CARBIDOPA\LEVODOPA
     Indication: PARKINSON^S DISEASE
     Dosage: 2400MG/24HRS
  18. VENLAFAXINE [Concomitant]
     Active Substance: VENLAFAXINE HYDROCHLORIDE
     Dosage: 150+75 MG
  19. OXYCONTIN [Concomitant]
     Active Substance: OXYCODONE HYDROCHLORIDE
  20. DOXAZOSIN [Concomitant]
     Active Substance: DOXAZOSIN\DOXAZOSIN MESYLATE

REACTIONS (11)
  - Death [Fatal]
  - On and off phenomenon [Unknown]
  - Bradykinesia [Unknown]
  - Hallucination [Unknown]
  - Paranoia [Unknown]
  - Perseveration [Unknown]
  - Cognitive disorder [Unknown]
  - Tearfulness [Unknown]
  - Dyskinesia [Unknown]
  - Sleep disorder [Unknown]
  - Condition aggravated [Unknown]

NARRATIVE: CASE EVENT DATE: 20190107
